FAERS Safety Report 10049120 (Version 1)
Quarter: 2014Q2

REPORT INFORMATION
  Report Type: Spontaneous
  Country: JP (occurrence: JP)
  Receive Date: 20140401
  Receipt Date: 20140401
  Transmission Date: 20141212
  Serious: Yes (Other)
  Sender: FDA-Public Use
  Company Number: JP-AMGEN-JPNSP2014021568

PATIENT
  Sex: Female

DRUGS (3)
  1. RANMARK [Suspect]
     Indication: METASTASES TO BONE
     Dosage: UNK
     Route: 065
  2. PACLITAXEL [Concomitant]
     Dosage: UNK
  3. AVASTIN                            /01555201/ [Concomitant]

REACTIONS (2)
  - Osteonecrosis of jaw [Not Recovered/Not Resolved]
  - Exposed bone in jaw [Not Recovered/Not Resolved]
